FAERS Safety Report 12892472 (Version 4)
Quarter: 2018Q1

REPORT INFORMATION
  Report Type: Spontaneous
  Country: US (occurrence: US)
  Receive Date: 20161028
  Receipt Date: 20180131
  Transmission Date: 20180508
  Serious: Yes (Hospitalization)
  Sender: FDA-Public Use
  Company Number: US-PFIZER INC-2016498805

PATIENT
  Age: 68 Year
  Sex: Female

DRUGS (1)
  1. XELJANZ XR [Suspect]
     Active Substance: TOFACITINIB CITRATE
     Indication: RHEUMATOID ARTHRITIS
     Dosage: 11 MG
     Dates: start: 20161007, end: 20161019

REACTIONS (6)
  - Chest pain [Unknown]
  - Intervertebral disc protrusion [Unknown]
  - Accident [Unknown]
  - Drug ineffective [Unknown]
  - Urinary tract infection [Unknown]
  - Spinal fracture [Unknown]

NARRATIVE: CASE EVENT DATE: 201610
